FAERS Safety Report 17916258 (Version 1)
Quarter: 2020Q2

REPORT INFORMATION
  Report Type: Spontaneous
  Country: DE (occurrence: DE)
  Receive Date: 20200619
  Receipt Date: 20200619
  Transmission Date: 20200714
  Serious: Yes (Hospitalization)
  Sender: FDA-Public Use
  Company Number: DE-TEVA-2020-DE-1788882

PATIENT
  Age: 66 Year
  Sex: Female

DRUGS (6)
  1. RAMIPRIL. [Suspect]
     Active Substance: RAMIPRIL
     Dosage: 1 DOSAGE FORMS DAILY; 5 MG, 0.5-0-0.5-0
     Route: 048
  2. SIMVASTATIN. [Concomitant]
     Active Substance: SIMVASTATIN
     Dosage: 20 MILLIGRAM DAILY; 0-0-1-0
     Route: 048
  3. BECLOMETASON [Concomitant]
     Active Substance: BECLOMETHASONE DIPROPIONATE
     Dosage: 500 MICROGRAM DAILY;   1-0-1-0
     Route: 055
  4. CYSTUS PANDALIS [Suspect]
     Active Substance: HERBALS
     Dosage: NK MG, ONE CAN PER DAY
     Route: 048
  5. LEVOTHYROXIN-NATRIUM [Concomitant]
     Active Substance: LEVOTHYROXINE SODIUM
     Dosage: .5 DOSAGE FORMS DAILY; 25 MICROGRAM , 0.5-0-0-0
     Route: 048
  6. TORASEMID [Concomitant]
     Active Substance: TORSEMIDE
     Dosage: .5 DOSAGE FORMS DAILY; 10 MG, 0.5-0-0-0
     Route: 048

REACTIONS (6)
  - Abdominal pain upper [Unknown]
  - Erythema [Unknown]
  - General physical health deterioration [Unknown]
  - Gastric mucosa erythema [Unknown]
  - Abdominal pain [Unknown]
  - Gastrooesophageal reflux disease [Unknown]
